FAERS Safety Report 10170372 (Version 2)
Quarter: 2014Q2

REPORT INFORMATION
  Report Type: Spontaneous
  Country: CA (occurrence: CA)
  Receive Date: 20140513
  Receipt Date: 20140513
  Transmission Date: 20141212
  Serious: Yes (Other)
  Sender: FDA-Public Use
  Company Number: PHHY2014CA004716

PATIENT
  Age: 80 Year
  Sex: Female

DRUGS (1)
  1. AZITHROMYCIN SANDOZ [Suspect]
     Indication: NASOPHARYNGITIS
     Dosage: 250 MG, QD
     Route: 048
     Dates: start: 20140110, end: 20140114

REACTIONS (3)
  - Hip fracture [Unknown]
  - Rash [Recovered/Resolved]
  - Pain [Recovered/Resolved]
